FAERS Safety Report 11128578 (Version 1)
Quarter: 2015Q2

REPORT INFORMATION
  Report Type: Spontaneous
  Country: US (occurrence: US)
  Receive Date: 20150521
  Receipt Date: 20150521
  Transmission Date: 20150821
  Serious: Yes (Disabling, Other)
  Sender: FDA-Public Use
  Company Number: US-AMGEN-USASP2015047504

PATIENT
  Age: 58 Year
  Sex: Female
  Weight: 68.48 kg

DRUGS (19)
  1. ADRIAMYCIN [Concomitant]
     Active Substance: DOXORUBICIN HYDROCHLORIDE
  2. TAXOL [Concomitant]
     Active Substance: PACLITAXEL
  3. LIDOCAINE. [Concomitant]
     Active Substance: LIDOCAINE
     Dosage: 5 %, QD
     Route: 061
  4. TAMSULOSIN HCL [Concomitant]
     Active Substance: TAMSULOSIN
     Dosage: 0.4 MG, QHS
     Route: 048
     Dates: start: 20150303
  5. XGEVA [Suspect]
     Active Substance: DENOSUMAB
     Indication: PRODUCT USED FOR UNKNOWN INDICATION
     Dosage: 120 MG, QMO
     Route: 058
  6. ABRAXANE [Concomitant]
     Active Substance: PACLITAXEL
  7. PANTOPRAZOLE SODIUM [Concomitant]
     Dosage: 40 MG, QD
     Route: 048
     Dates: start: 20150210
  8. OXYCODONE AND ACETAMINOPHEN [Concomitant]
     Active Substance: ACETAMINOPHEN\OXYCODONE\OXYCODONE HYDROCHLORIDE
     Indication: PAIN
     Dosage: 7.5-325 MG EVERY 4-6 HRS, AS NECESSARY
     Route: 048
     Dates: start: 20150309
  9. NAVELBINE [Concomitant]
     Active Substance: VINORELBINE TARTRATE
  10. ZOFRAN                             /00955301/ [Concomitant]
     Active Substance: ONDANSETRON HYDROCHLORIDE
     Dosage: 8 MG, Q6H PRN
     Route: 048
  11. AVASTIN [Concomitant]
     Active Substance: BEVACIZUMAB
  12. MAGNESIUM OXIDE. [Concomitant]
     Active Substance: MAGNESIUM OXIDE
     Dosage: 400 MG, QD
     Route: 048
  13. HALAVEN [Concomitant]
     Active Substance: ERIBULIN MESYLATE
  14. GEMZAR [Concomitant]
     Active Substance: GEMCITABINE HYDROCHLORIDE
  15. ATIVAN [Concomitant]
     Active Substance: LORAZEPAM
     Indication: ANXIETY
     Dosage: (0.5 MG) 2 DF, TID
     Route: 048
  16. TAXOTERE [Concomitant]
     Active Substance: DOCETAXEL
  17. NEULASTA [Suspect]
     Active Substance: PEGFILGRASTIM
     Indication: PRODUCT USED FOR UNKNOWN INDICATION
     Dosage: 6 MG, UNK
     Route: 058
     Dates: start: 20150210
  18. FASLODEX [Concomitant]
     Active Substance: FULVESTRANT
  19. OXYCONTIN [Concomitant]
     Active Substance: OXYCODONE HYDROCHLORIDE
     Dosage: 15 MG, Q12H
     Route: 048

REACTIONS (42)
  - Bone marrow failure [Unknown]
  - Metastases to gastrointestinal tract [Unknown]
  - Neoplasm progression [Unknown]
  - Gastrointestinal disorder [Unknown]
  - Urine analysis abnormal [Unknown]
  - Conjunctivitis allergic [Unknown]
  - Disorder of orbit [Unknown]
  - Urinary hesitation [Unknown]
  - Colitis [Unknown]
  - Nephrolithiasis [Unknown]
  - Urinary retention [Unknown]
  - Metastases to chest wall [Unknown]
  - Biliary dilatation [Unknown]
  - Pain [Not Recovered/Not Resolved]
  - Body mass index abnormal [Unknown]
  - Nasopharyngitis [Unknown]
  - Cystitis [Unknown]
  - Oropharyngeal pain [Unknown]
  - Micturition urgency [Unknown]
  - Ureteral disorder [Unknown]
  - Pain in extremity [Unknown]
  - Ureteric stenosis [Unknown]
  - Disability [Unknown]
  - Urinary tract infection [Unknown]
  - Drug intolerance [Unknown]
  - Rhinitis allergic [Unknown]
  - Flank pain [Unknown]
  - Back pain [Unknown]
  - Arthralgia [Unknown]
  - Mass [Unknown]
  - Nocturia [Unknown]
  - Skin mass [Unknown]
  - Thrombocytopenia [Unknown]
  - Fatigue [Unknown]
  - Asthenia [Unknown]
  - Metastases to bone [Unknown]
  - Atelectasis [Unknown]
  - Upper respiratory tract infection [Unknown]
  - Metastases to liver [Unknown]
  - Urinary straining [Unknown]
  - Urogenital disorder [Unknown]
  - Dysuria [Unknown]
